FAERS Safety Report 26124298 (Version 1)
Quarter: 2025Q4

REPORT INFORMATION
  Report Type: Spontaneous
  Country: US (occurrence: US)
  Receive Date: 20251205
  Receipt Date: 20251205
  Transmission Date: 20260117
  Serious: Yes (Other)
  Sender: SANOFI AVENTIS
  Company Number: US-SA-2025SA362759

PATIENT
  Age: 88 Year
  Sex: Male

DRUGS (10)
  1. KEVZARA [Suspect]
     Active Substance: SARILUMAB
     Indication: Polymyalgia rheumatica
     Dosage: 200 MG, QOW
     Route: 058
     Dates: start: 20251105
  2. ATORVASTATIN [Concomitant]
     Active Substance: ATORVASTATIN
  3. CEQUA [Concomitant]
     Active Substance: CYCLOSPORINE
  4. CLOPIDOGREL [Concomitant]
     Active Substance: CLOPIDOGREL BISULFATE
  5. GEMTESA [Concomitant]
     Active Substance: VIBEGRON
  6. PREDNISONE [Concomitant]
     Active Substance: PREDNISONE
  7. RAYOS [Concomitant]
     Active Substance: PREDNISONE
  8. RIVASTIGMINE [Concomitant]
     Active Substance: RIVASTIGMINE
  9. SOTALOL [Concomitant]
     Active Substance: SOTALOL
  10. TRAZODONE [Concomitant]
     Active Substance: TRAZODONE HYDROCHLORIDE

REACTIONS (1)
  - Polymyalgia rheumatica [Unknown]

NARRATIVE: CASE EVENT DATE: 20251101
